FAERS Safety Report 14683965 (Version 1)
Quarter: 2018Q1

REPORT INFORMATION
  Report Type: Spontaneous
  Country: IT (occurrence: IT)
  Receive Date: 20180327
  Receipt Date: 20180327
  Transmission Date: 20180509
  Serious: Yes (Other)
  Sender: FDA-Public Use
  Company Number: IT-ELI_LILLY_AND_COMPANY-IT201803006742

PATIENT
  Age: 67 Year
  Sex: Female

DRUGS (2)
  1. CARDIOASPIRINA [Concomitant]
     Active Substance: ASPIRIN
     Indication: BLOOD PRESSURE ABNORMAL
  2. FORSTEO 250UG/ML [Suspect]
     Active Substance: TERIPARATIDE
     Indication: PRODUCT USED FOR UNKNOWN INDICATION
     Dosage: UNK, UNKNOWN
     Route: 065
     Dates: start: 20171012, end: 20180314

REACTIONS (4)
  - Upper limb fracture [Unknown]
  - Pain in extremity [Unknown]
  - Deep vein thrombosis [Unknown]
  - Fall [Unknown]

NARRATIVE: CASE EVENT DATE: 20180223
